FAERS Safety Report 8169018-X (Version None)
Quarter: 2012Q1

REPORT INFORMATION
  Report Type: 
  Country: None (occurrence: None)
  Receive Date: 20120227
  Receipt Date: 20120217
  Transmission Date: 20120608
  Serious: Yes (Hospitalization)
  Sender: FDA-Public Use
  Company Number: PHHY2012GB013678

PATIENT
  Age: 74 Year
  Sex: Female

DRUGS (6)
  1. CEFTRIAXONE [Suspect]
     Indication: CELLULITIS
     Dosage: 2 G, UNK
     Route: 042
     Dates: start: 20120120, end: 20120129
  2. BEZAFIBRATE [Concomitant]
  3. BISOPROLOL FUMARATE [Concomitant]
  4. DIGOXIN [Concomitant]
  5. ALLOPURINOL [Concomitant]
  6. CITALOPRAM HYDROBROMIDE [Concomitant]

REACTIONS (2)
  - TONGUE DISORDER [None]
  - ORAL PAIN [None]
